FAERS Safety Report 25647048 (Version 5)
Quarter: 2025Q4

REPORT INFORMATION
  Report Type: Report from Study
  Country: AR (occurrence: AR)
  Receive Date: 20250806
  Receipt Date: 20251119
  Transmission Date: 20260117
  Serious: Yes (Hospitalization, Other)
  Sender: NOVARTIS
  Company Number: AR-002147023-NVSC2025AR069011

PATIENT
  Age: 45 Year
  Sex: Female

DRUGS (10)
  1. KISQALI [Suspect]
     Active Substance: RIBOCICLIB SUCCINATE
     Indication: Breast cancer metastatic
     Dosage: 600 MG, QD
     Route: 048
     Dates: start: 20241016
  2. KISQALI [Suspect]
     Active Substance: RIBOCICLIB SUCCINATE
     Indication: Metastases to lung
     Dosage: 400 MG, QD
     Route: 048
  3. KISQALI [Suspect]
     Active Substance: RIBOCICLIB SUCCINATE
     Indication: Metastases to bone
  4. LETROZOLE [Suspect]
     Active Substance: LETROZOLE
     Indication: Breast cancer metastatic
     Dosage: 2.5 MG, QD
     Route: 048
     Dates: start: 20241016
  5. LETROZOLE [Suspect]
     Active Substance: LETROZOLE
     Indication: Metastases to lung
  6. LETROZOLE [Suspect]
     Active Substance: LETROZOLE
     Indication: Metastases to bone
  7. ZOMETA [Suspect]
     Active Substance: ZOLEDRONIC ACID
     Indication: Breast cancer metastatic
     Dosage: 4 MG, QMO
     Route: 042
     Dates: start: 20241016, end: 202504
  8. ZOMETA [Suspect]
     Active Substance: ZOLEDRONIC ACID
     Indication: Metastases to lung
     Dosage: 4 ML, 21D (EVERY 21 DAYS)
     Route: 042
  9. ZOMETA [Suspect]
     Active Substance: ZOLEDRONIC ACID
     Indication: Metastases to bone
  10. OMEPRAZOLE [Concomitant]
     Active Substance: OMEPRAZOLE
     Indication: Abdominal discomfort
     Dosage: UNK
     Route: 065

REACTIONS (21)
  - Pain [Unknown]
  - White blood cell count decreased [Unknown]
  - Disorientation [Recovered/Resolved]
  - Malaise [Unknown]
  - Decreased immune responsiveness [Unknown]
  - Memory impairment [Unknown]
  - Hypersensitivity [Unknown]
  - Dry skin [Unknown]
  - Pruritus [Recovered/Resolved]
  - Liver disorder [Unknown]
  - Feeling abnormal [Unknown]
  - Axillary mass [Unknown]
  - Gallbladder disorder [Unknown]
  - Pigmentation disorder [Unknown]
  - Jaundice [Unknown]
  - Yellow skin [Recovering/Resolving]
  - Eye colour change [Recovering/Resolving]
  - Hepatomegaly [Unknown]
  - Pruritus [Unknown]
  - Hepatic lesion [Unknown]
  - Abdominal pain [Not Recovered/Not Resolved]

NARRATIVE: CASE EVENT DATE: 20250401
